FAERS Safety Report 23331581 (Version 6)
Quarter: 2024Q4

REPORT INFORMATION
  Report Type: Report from Study
  Country: US (occurrence: US)
  Receive Date: 20231222
  Receipt Date: 20241217
  Transmission Date: 20250115
  Serious: Yes (Hospitalization, Other)
  Sender: HELSINN HEALTHCARE
  Company Number: US-HBP-2023US030231

PATIENT
  Age: 82 Year
  Sex: Female

DRUGS (18)
  1. VALCHLOR [Suspect]
     Active Substance: MECHLORETHAMINE
     Indication: Cutaneous T-cell lymphoma
     Dosage: THIN FILM, QD
     Route: 061
     Dates: end: 202309
  2. VALCHLOR [Suspect]
     Active Substance: MECHLORETHAMINE
     Dosage: THIN FILM, QD
     Route: 061
     Dates: start: 20230918, end: 202311
  3. VALCHLOR [Suspect]
     Active Substance: MECHLORETHAMINE
     Dosage: THIN FILM, QD
     Route: 061
     Dates: start: 20231124
  4. VALCHLOR [Suspect]
     Active Substance: MECHLORETHAMINE
     Dosage: THIN FILM, QD
     Route: 061
  5. VALCHLOR [Suspect]
     Active Substance: MECHLORETHAMINE
     Dosage: THIN FILM, QD
     Route: 061
  6. VALCHLOR [Suspect]
     Active Substance: MECHLORETHAMINE
     Dosage: THIN FILM, QD
     Route: 061
  7. FARXIGA [Suspect]
     Active Substance: DAPAGLIFLOZIN PROPANEDIOL
     Indication: Product used for unknown indication
     Dosage: UNK, UNKNOWN
     Route: 065
     Dates: start: 2024, end: 202412
  8. OLMESARTAN MEDOXOMIL [Concomitant]
     Active Substance: OLMESARTAN MEDOXOMIL
     Dosage: UNK, UNKNOWN
  9. FENOFIBRATE [Concomitant]
     Active Substance: FENOFIBRATE
     Dosage: UNK, UNKNOWN
  10. TRIAMCINOLONE ACETONIDE [Concomitant]
     Active Substance: TRIAMCINOLONE ACETONIDE
     Dosage: UNK, UNKNOWN
     Route: 065
     Dates: start: 20190606
  11. BENADRYL ITCH STOPPING CREAM [Concomitant]
     Dosage: UNK, UNKNOWN
     Route: 065
     Dates: start: 20190606
  12. ATORVASTATIN CALCIUM [Concomitant]
     Active Substance: ATORVASTATIN CALCIUM
     Indication: Blood pressure abnormal
     Dosage: UNK, UNKNOWN
  13. METHENAMINE HIPPURATE [Concomitant]
     Active Substance: METHENAMINE HIPPURATE
     Dosage: UNK, UNKNOWN
  14. JANUVIA [Concomitant]
     Active Substance: SITAGLIPTIN PHOSPHATE
     Dosage: UNK, UNKNOWN
  15. ESTRADIOL [Concomitant]
     Active Substance: ESTRADIOL
     Dosage: UNK, UNKNOWN
  16. TAMSULOSIN HYDROCHLORIDE [Concomitant]
     Active Substance: TAMSULOSIN HYDROCHLORIDE
     Dosage: UNK, UNKNOWN
  17. SUCRALFATE [Concomitant]
     Active Substance: SUCRALFATE
     Dosage: UNK, UNKNOWN
  18. VALSARTAN [Concomitant]
     Active Substance: VALSARTAN
     Dosage: UNK, UNKNOWN

REACTIONS (21)
  - Bacterial infection [Unknown]
  - COVID-19 [Unknown]
  - Pneumonia [Unknown]
  - Cutaneous T-cell lymphoma [Not Recovered/Not Resolved]
  - Condition aggravated [Not Recovered/Not Resolved]
  - Hypertension [Not Recovered/Not Resolved]
  - Urinary tract infection bacterial [Not Recovered/Not Resolved]
  - Irregular breathing [Not Recovered/Not Resolved]
  - Blood glucose abnormal [Not Recovered/Not Resolved]
  - Application site haemorrhage [Not Recovered/Not Resolved]
  - Application site papules [Not Recovered/Not Resolved]
  - Skin burning sensation [Not Recovered/Not Resolved]
  - Illness [Not Recovered/Not Resolved]
  - Intentional dose omission [Unknown]
  - Skin lesion [Unknown]
  - Thinking abnormal [Not Recovered/Not Resolved]
  - Application site pruritus [Unknown]
  - Application site rash [Unknown]
  - Erythema [Recovering/Resolving]
  - Dry skin [Recovering/Resolving]
  - Pruritus [Not Recovered/Not Resolved]

NARRATIVE: CASE EVENT DATE: 20231101
